FAERS Safety Report 20501256 (Version 1)
Quarter: 2022Q1

REPORT INFORMATION
  Report Type: Report from Study
  Country: BE (occurrence: BE)
  Receive Date: 20220222
  Receipt Date: 20220222
  Transmission Date: 20220423
  Serious: Yes (Other)
  Sender: FDA-Public Use
  Company Number: BE-ABBVIE-22K-013-4286176-00

PATIENT
  Sex: Male
  Weight: 100 kg

DRUGS (4)
  1. CARBIDOPA\LEVODOPA [Suspect]
     Active Substance: CARBIDOPA\LEVODOPA
     Indication: Parkinson^s disease
     Route: 050
     Dates: start: 20181015
  2. CARBIDOPA\LEVODOPA [Suspect]
     Active Substance: CARBIDOPA\LEVODOPA
     Dosage: MD 5.0 ML; CD 2.9 ML/HR DURING 16 HOURS; ED 1.0 ML
     Route: 050
     Dates: start: 20210602
  3. BENSERAZIDE\LEVODOPA [Concomitant]
     Active Substance: BENSERAZIDE\LEVODOPA
     Indication: Product used for unknown indication
     Dosage: 0.75 TABLET AT 8:00, 12:00, 16:00 AND 20:00 HRS
  4. REQUIP [Concomitant]
     Active Substance: ROPINIROLE HYDROCHLORIDE
     Indication: Product used for unknown indication
     Dosage: AT 8:00 HRS

REACTIONS (4)
  - Loss of consciousness [Unknown]
  - On and off phenomenon [Unknown]
  - Stoma site hypergranulation [Unknown]
  - Stoma site discharge [Unknown]
